FAERS Safety Report 5166886-0 (Version None)
Quarter: 2006Q4

REPORT INFORMATION
  Report Type: 
  Country: None (occurrence: None)
  Receive Date: 20061207
  Receipt Date: 20061130
  Transmission Date: 20070319
  Serious: Yes (Life-Threatening, Other)
  Sender: FDA-Public Use
  Company Number: CA-JNJFOC-20061200235

PATIENT
  Sex: Male
  Weight: 64 kg

DRUGS (4)
  1. REMICADE [Suspect]
     Indication: RHEUMATOID ARTHRITIS
     Dosage: 26 INFUSIONS
     Route: 042
  2. INDOCID [Concomitant]
  3. METHOTREXATE [Concomitant]
     Route: 048
  4. NEORAL [Concomitant]
     Route: 048

REACTIONS (1)
  - TONGUE NEOPLASM MALIGNANT STAGE UNSPECIFIED [None]
